FAERS Safety Report 8216958 (Version 4)
Quarter: 2013Q2

REPORT INFORMATION
  Report Type: Spontaneous
  Country: US (occurrence: None)
  Receive Date: 20111021
  Receipt Date: 20130327
  Transmission Date: 20140414
  Serious: Yes (Hospitalization)
  Sender: FDA-Public Use
  Company Number: 2011-4144

PATIENT
  Age: 21 Year
  Sex: Male

DRUGS (2)
  1. SOMATULINE DEPOT [Suspect]
     Indication: ACROMEGALY
     Dosage: ON HOLD
     Route: 058
     Dates: start: 20110404, end: 201109
  2. DDAVP [Concomitant]

REACTIONS (16)
  - ABASIA [None]
  - Balance disorder [None]
  - INCREASED APPETITE [None]
  - ANAL INFLAMMATION [None]
  - DEFAECATION URGENCY [None]
  - ABDOMINAL PAIN [None]
  - FLATULENCE [None]
  - HEPATIC ENZYME INCREASED [None]
  - INJECTION SITE PAIN [None]
  - BLOOD GLUCOSE DECREASED [None]
  - PITUITARY TUMOUR REMOVAL [None]
  - HEADACHE [None]
  - INSULIN-LIKE GROWTH FACTOR INCREASED [None]
  - INTRAVENTRICULAR HAEMORRHAGE [None]
  - HYPONATRAEMIA [None]
  - ASTHENIA [None]
